FAERS Safety Report 7031659-0 (Version None)
Quarter: 2010Q4

REPORT INFORMATION
  Report Type: 
  Country: None (occurrence: None)
  Receive Date: 20101006
  Receipt Date: 20101006
  Transmission Date: 20110411
  Serious: Yes (Hospitalization, Other)
  Sender: FDA-Public Use
  Company Number: None

PATIENT
  Age: 25 Year
  Sex: Male
  Weight: 56.6996 kg

DRUGS (2)
  1. VANCOMYCIN [Suspect]
     Indication: SEPSIS
     Dosage: IV DRIP
     Route: 041
     Dates: start: 20091229, end: 20100312
  2. VANCOMYCIN [Suspect]
     Indication: STAPHYLOCOCCAL INFECTION
     Dosage: IV DRIP
     Route: 041
     Dates: start: 20091229, end: 20100312

REACTIONS (4)
  - DEAFNESS [None]
  - DRUG LEVEL INCREASED [None]
  - HYPOXIA [None]
  - NERVOUS SYSTEM DISORDER [None]
